FAERS Safety Report 10163869 (Version 1)
Quarter: 2014Q2

REPORT INFORMATION
  Report Type: Report from Study
  Country: US (occurrence: US)
  Receive Date: 20140509
  Receipt Date: 20140509
  Transmission Date: 20141212
  Serious: Yes (Hospitalization, Other)
  Sender: FDA-Public Use
  Company Number: US-ABBVIE-14P-163-1231024-00

PATIENT
  Age: 63 Year
  Sex: Male
  Weight: 99.88 kg

DRUGS (15)
  1. HUMIRA [Suspect]
     Indication: RHEUMATOID ARTHRITIS
     Route: 058
     Dates: start: 201304, end: 201311
  2. HUMIRA [Suspect]
     Route: 058
     Dates: start: 20140417
  3. ASPIRIN [Concomitant]
     Indication: THROMBOSIS PROPHYLAXIS
  4. ATENOLOL [Concomitant]
     Indication: HYPERTENSION
  5. CRESTOR [Concomitant]
     Indication: BLOOD CHOLESTEROL INCREASED
  6. PROSCAR [Concomitant]
     Indication: BENIGN PROSTATIC HYPERPLASIA
  7. IMDUR [Concomitant]
     Indication: HYPERTENSION
  8. ADALAT CC [Concomitant]
     Indication: HYPERTENSION
  9. PROTONIX [Concomitant]
     Indication: GASTROOESOPHAGEAL REFLUX DISEASE
  10. PLAVIX [Concomitant]
     Indication: THROMBOSIS PROPHYLAXIS
  11. FLOMAX [Concomitant]
     Indication: BENIGN PROSTATIC HYPERPLASIA
  12. AMBIEN [Concomitant]
     Indication: INSOMNIA
  13. DILAUDID [Concomitant]
     Indication: RHEUMATOID ARTHRITIS
     Dosage: AS NEEDED
  14. VALIUM [Concomitant]
     Indication: ANXIETY
  15. BENADRYL [Concomitant]
     Indication: RHINORRHOEA

REACTIONS (3)
  - Cardiac pacemaker battery replacement [Recovered/Resolved]
  - Staphylococcal infection [Recovered/Resolved]
  - Injection site pain [Not Recovered/Not Resolved]
